FAERS Safety Report 25091847 (Version 1)
Quarter: 2025Q1

REPORT INFORMATION
  Report Type: Spontaneous
  Country: US (occurrence: US)
  Receive Date: 20250318
  Receipt Date: 20250318
  Transmission Date: 20250408
  Serious: Yes (Life-Threatening, Other)
  Sender: PRINSTON PHARMACEUTICAL
  Company Number: US-PRINSTON PHARMACEUTICAL INC.-2025PRN00073

PATIENT
  Age: 6 Decade
  Sex: Male

DRUGS (4)
  1. LISINOPRIL [Suspect]
     Active Substance: LISINOPRIL
     Indication: Hypertension
     Dosage: 20 MG, 1X/DAY
  2. TIZANIDINE [Suspect]
     Active Substance: TIZANIDINE
     Dosage: 8 MG, 3X/DAY
     Route: 065
  3. METOPROLOL TARTRATE [Concomitant]
     Active Substance: METOPROLOL TARTRATE
     Indication: Hypertension
     Dosage: 25 MG, 2X/DAY
  4. HYDRALAZINE [Concomitant]
     Active Substance: HYDRALAZINE HYDROCHLORIDE

REACTIONS (2)
  - Drug interaction [Recovered/Resolved]
  - Hypotension [Recovered/Resolved]
